FAERS Safety Report 12579679 (Version 2)
Quarter: 2016Q4

REPORT INFORMATION
  Report Type: Spontaneous
  Country: FR (occurrence: FR)
  Receive Date: 20160721
  Receipt Date: 20161111
  Transmission Date: 20170207
  Serious: Yes (Other)
  Sender: FDA-Public Use
  Company Number: FR-TOLMAR, INC.-2016FR007010

PATIENT
  Age: 72 Year
  Sex: Male

DRUGS (3)
  1. CASODEX [Concomitant]
     Active Substance: BICALUTAMIDE
     Dosage: 50 MG, UNK
     Dates: start: 201303, end: 201306
  2. ELIGARD [Suspect]
     Active Substance: LEUPROLIDE ACETATE
     Indication: PROSTATE CANCER METASTATIC
     Dosage: 45 MG, PER 6 MONTHS
     Route: 065
     Dates: start: 201303, end: 201506
  3. ELIGARD [Suspect]
     Active Substance: LEUPROLIDE ACETATE
     Dosage: 45 MG, PER 6 MONTHS
     Route: 065
     Dates: start: 201506

REACTIONS (1)
  - Hormone-refractory prostate cancer [Unknown]

NARRATIVE: CASE EVENT DATE: 201509
